FAERS Safety Report 17473126 (Version 1)
Quarter: 2020Q1

REPORT INFORMATION
  Report Type: Spontaneous
  Country: US (occurrence: US)
  Receive Date: 20200228
  Receipt Date: 20200228
  Transmission Date: 20200409
  Serious: Yes (Death, Hospitalization)
  Sender: FDA-Public Use
  Company Number: US-MYLANLABS-2020M1020983

PATIENT
  Age: 17 Year
  Sex: Female

DRUGS (2)
  1. MECLIZINE [Suspect]
     Active Substance: MECLIZINE HYDROCHLORIDE
     Indication: PRODUCT USED FOR UNKNOWN INDICATION
     Dosage: PILLS
     Route: 048
  2. BENZONATATE. [Suspect]
     Active Substance: BENZONATATE
     Indication: PRODUCT USED FOR UNKNOWN INDICATION
     Dosage: PILLS
     Route: 048

REACTIONS (13)
  - Completed suicide [Fatal]
  - Intentional overdose [Fatal]
  - Seizure [Fatal]
  - Coma [Fatal]
  - Pulse absent [Recovered/Resolved]
  - Hyperthermia [Not Recovered/Not Resolved]
  - Liver function test increased [Recovering/Resolving]
  - Decerebrate posture [Not Recovered/Not Resolved]
  - Toxicity to various agents [Fatal]
  - Somnolence [Not Recovered/Not Resolved]
  - Pupil fixed [Not Recovered/Not Resolved]
  - Apnoea [Fatal]
  - Tremor [Not Recovered/Not Resolved]
